FAERS Safety Report 11312265 (Version 1)
Quarter: 2015Q3

REPORT INFORMATION
  Report Type: Spontaneous
  Country: US (occurrence: None)
  Receive Date: 20150724
  Receipt Date: 20150724
  Transmission Date: 20151125
  Serious: No
  Sender: FDA-Public Use
  Company Number: None

PATIENT
  Age: 52 Year
  Sex: Male

DRUGS (14)
  1. CEFAZOLIN [Concomitant]
     Active Substance: CEFAZOLIN
  2. FAMOTIDINE. [Concomitant]
     Active Substance: FAMOTIDINE
  3. VANCOMYCIN [Concomitant]
     Active Substance: VANCOMYCIN
  4. WARFARIN [Suspect]
     Active Substance: WARFARIN
     Indication: ANTICOAGULANT THERAPY
     Route: 048
     Dates: start: 20150402, end: 20150402
  5. VANCOMYCIN [Concomitant]
     Active Substance: VANCOMYCIN
  6. SENNA [Concomitant]
     Active Substance: SENNA LEAF\SENNOSIDES\SENNOSIDES A AND B
  7. MIDAZOLAM [Concomitant]
     Active Substance: MIDAZOLAM\MIDAZOLAM HYDROCHLORIDE
  8. DOCUSATE [Concomitant]
     Active Substance: DOCUSATE
  9. MEPERIDINE [Concomitant]
     Active Substance: MEPERIDINE
  10. ACETAMINOPHEN. [Concomitant]
     Active Substance: ACETAMINOPHEN
  11. SENNA [Concomitant]
     Active Substance: SENNA LEAF\SENNOSIDES\SENNOSIDES A AND B
  12. FENTANYL. [Concomitant]
     Active Substance: FENTANYL
  13. INSULIN ASPART [Concomitant]
     Active Substance: INSULIN ASPART
  14. OXYCODONE-ACETAMINOPHEN [Concomitant]
     Active Substance: ACETAMINOPHEN\OXYCODONE HYDROCHLORIDE

REACTIONS (1)
  - International normalised ratio increased [None]

NARRATIVE: CASE EVENT DATE: 20150403
